FAERS Safety Report 9895535 (Version 1)
Quarter: 2014Q1

REPORT INFORMATION
  Report Type: Spontaneous
  Country: US (occurrence: US)
  Receive Date: 20140213
  Receipt Date: 20140213
  Transmission Date: 20141002
  Serious: No
  Sender: FDA-Public Use
  Company Number: US-BRISTOL-MYERS SQUIBB COMPANY-17285818

PATIENT
  Age: 74 Year
  Sex: Male
  Weight: 86.17 kg

DRUGS (3)
  1. ABATACEPT SUBQ INJECTION 125MG/ML [Suspect]
     Indication: RHEUMATOID ARTHRITIS
     Route: 058
     Dates: start: 20130111
  2. VITAMIN B12 [Concomitant]
  3. ASPIRIN [Concomitant]

REACTIONS (1)
  - Pain [Unknown]
